FAERS Safety Report 9127515 (Version 1)
Quarter: 2013Q1

REPORT INFORMATION
  Report Type: Spontaneous
  Country: US (occurrence: US)
  Receive Date: 20130228
  Receipt Date: 20130228
  Transmission Date: 20140127
  Serious: Yes (Other)
  Sender: FDA-Public Use
  Company Number: US-GLAXOSMITHKLINE-A0980971A

PATIENT
  Age: 9 Year
  Sex: Male

DRUGS (2)
  1. LAMOTRIGINE [Suspect]
     Indication: BIPOLAR DISORDER
     Route: 048
     Dates: start: 201107
  2. RISPERDAL [Concomitant]

REACTIONS (2)
  - Hypothyroidism [Recovering/Resolving]
  - Fatigue [Recovering/Resolving]
